FAERS Safety Report 6264083-9 (Version None)
Quarter: 2009Q3

REPORT INFORMATION
  Report Type: 
  Country: None (occurrence: None)
  Receive Date: 20090706
  Receipt Date: 20080722
  Transmission Date: 20100115
  Serious: Yes (Other)
  Sender: FDA-Public Use
  Company Number: 577072

PATIENT
  Age: 58 Year
  Sex: Male
  Weight: 99.8 kg

DRUGS (21)
  1. CELLCEPT [Suspect]
     Indication: PROPHYLAXIS AGAINST TRANSPLANT REJECTION
     Dosage: 500 MG  2 PER 2 DAY  ORAL
     Route: 048
     Dates: start: 19971005
  2. NEORAL [Concomitant]
  3. PREDNISONE TAB [Concomitant]
  4. PLAVIX [Concomitant]
  5. CRESTOR [Concomitant]
  6. FLOMAX (*MORNIFLUMATE/*TAMSULOSIN HYDROCHLORIDE) [Concomitant]
  7. ASPIRIN [Concomitant]
  8. SYNTHROID [Concomitant]
  9. PRILOSEC [Concomitant]
  10. MAGNESIUM SULFATE [Concomitant]
  11. EFFEXOR [Concomitant]
  12. DITROPAN [Concomitant]
  13. TESTOSTERONE [Concomitant]
  14. LORTAB [Concomitant]
  15. XANAX [Concomitant]
  16. ATIVAN [Concomitant]
  17. LASIX [Concomitant]
  18. ZAROXOLYN [Concomitant]
  19. UNSPECIFIED DRUGS (GENERIC UNKNOWN) [Concomitant]
  20. OXYCODONE [Concomitant]
  21. CARDURA [Concomitant]

REACTIONS (4)
  - BACK PAIN [None]
  - NECK PAIN [None]
  - PROGRESSIVE MULTIFOCAL LEUKOENCEPHALOPATHY [None]
  - RENAL FAILURE [None]
